FAERS Safety Report 23087377 (Version 3)
Quarter: 2024Q4

REPORT INFORMATION
  Report Type: Report from Study
  Country: US (occurrence: US)
  Receive Date: 20231020
  Receipt Date: 20241018
  Transmission Date: 20250114
  Serious: Yes (Other)
  Sender: ROCHE
  Company Number: US-ROCHE-3401090

PATIENT
  Age: 28 Year
  Sex: Female
  Weight: 65.6 kg

DRUGS (6)
  1. OCREVUS [Suspect]
     Active Substance: OCRELIZUMAB
     Indication: Relapsing multiple sclerosis
     Dosage: THEN 600 MG EVERY 6 WEEKS.
     Route: 065
     Dates: start: 20171217
  2. PROVENTIL [Concomitant]
     Active Substance: ALBUTEROL
  3. VITAMIN D3 [Concomitant]
     Active Substance: CHOLECALCIFEROL
  4. CYANOCOBALAMIN [Concomitant]
     Active Substance: CYANOCOBALAMIN
  5. SYNTHROID [Concomitant]
     Active Substance: LEVOTHYROXINE SODIUM
  6. ZOLOFT [Concomitant]
     Active Substance: SERTRALINE HYDROCHLORIDE

REACTIONS (5)
  - Maternal exposure before pregnancy [Unknown]
  - Demyelination [Unknown]
  - Depression [Unknown]
  - Anxiety [Unknown]
  - Eating disorder [Unknown]
